FAERS Safety Report 9437357 (Version 1)
Quarter: 2013Q3

REPORT INFORMATION
  Report Type: Spontaneous
  Country: CA (occurrence: None)
  Receive Date: 20130731
  Receipt Date: 20130731
  Transmission Date: 20140515
  Serious: Yes (Hospitalization, Other)
  Sender: FDA-Public Use
  Company Number: FK201302779

PATIENT
  Age: 20 Year
  Sex: Male

DRUGS (4)
  1. DOXYCYCLINE [Suspect]
     Indication: TENOSYNOVITIS
  2. BACTRIM [Suspect]
     Indication: TENOSYNOVITIS
  3. CEFTRIAXONE FOR INJECTION (CEFTRIAXONE SODIUM) [Concomitant]
  4. VANCOMYCIN (VANCOMYCIN) [Concomitant]

REACTIONS (12)
  - Drug reaction with eosinophilia and systemic symptoms [None]
  - Stevens-Johnson syndrome [None]
  - Septic shock [None]
  - Respiratory failure [None]
  - Disseminated intravascular coagulation [None]
  - Splenic infarction [None]
  - Lymphadenopathy [None]
  - Drug hypersensitivity [None]
  - Human herpesvirus 6 infection [None]
  - Upper respiratory tract infection [None]
  - Renal failure [None]
  - Leukocytosis [None]
